FAERS Safety Report 9878611 (Version 1)
Quarter: 2014Q1

REPORT INFORMATION
  Report Type: Spontaneous
  Country: FR (occurrence: FR)
  Receive Date: 20140206
  Receipt Date: 20140206
  Transmission Date: 20141002
  Serious: Yes (Hospitalization)
  Sender: FDA-Public Use
  Company Number: FR-ASTRAZENECA-2014SE06401

PATIENT
  Age: 14771 Day
  Sex: Female

DRUGS (1)
  1. XYLOCAINE [Suspect]
     Dosage: ONCE
     Route: 004

REACTIONS (1)
  - Myasthenia gravis crisis [Not Recovered/Not Resolved]
